FAERS Safety Report 5803889-4 (Version None)
Quarter: 2008Q3

REPORT INFORMATION
  Report Type: 
  Country: None (occurrence: None)
  Receive Date: 20080703
  Receipt Date: 20080611
  Transmission Date: 20090109
  Serious: Yes (Hospitalization)
  Sender: FDA-Public Use
  Company Number: 001#1#2008-00385

PATIENT
  Age: 68 Year
  Sex: Female

DRUGS (9)
  1. NEUPRO [Suspect]
     Indication: PARKINSON'S DISEASE
     Dosage: 8 MG/24H (8 MG/24H 1 IN 1 DAY(S)) TRANSDERMAL
     Route: 062
     Dates: start: 20080201, end: 20080604
  2. NEUPRO [Suspect]
     Indication: PARKINSON'S DISEASE
     Dosage: 8 MG/24H (8 MG/24H 1 IN 1 DAY(S)) TRANSDERMAL
     Route: 062
     Dates: start: 20080608
  3. MADOPAR (BENSERAZIDE HYDROCHLORIDE, LEVODOPA) [Concomitant]
  4. LEVODOPA (LEVODOPA) [Concomitant]
  5. AMANTADINE HCL [Concomitant]
  6. MADOPAR-DEPOT (BENSERAZIDE HYDROCHLORIDE, LEVODOPA) [Concomitant]
  7. FOLIC ACID [Concomitant]
  8. MOVICOL (MACROGOL, POTASSIUM CHLORIDE, SODIUM BICARBONATE, SODIUM CHLO [Concomitant]
  9. ALENDRONATE SODIUM [Concomitant]

REACTIONS (8)
  - ARRHYTHMIA [None]
  - COMPUTERISED TOMOGRAM ABNORMAL [None]
  - DELIRIUM [None]
  - DRUG DOSE OMISSION [None]
  - ELECTROENCEPHALOGRAM ABNORMAL [None]
  - EPILEPSY [None]
  - MULTIPLE SCLEROSIS [None]
  - PSYCHIATRIC SYMPTOM [None]
